FAERS Safety Report 4560903-4 (Version None)
Quarter: 2005Q1

REPORT INFORMATION
  Report Type: 
  Country: None (occurrence: None)
  Receive Date: 20050126
  Receipt Date: 20050120
  Transmission Date: 20050727
  Serious: Yes (Hospitalization)
  Sender: FDA-Public Use
  Company Number: US-JNJFOC-20050105033

PATIENT
  Age: 49 Year
  Sex: Male

DRUGS (1)
  1. DURAGESIC [Suspect]
     Route: 062

REACTIONS (4)
  - ANGINA PECTORIS [None]
  - APPLICATION SITE ERYTHEMA [None]
  - HEART RATE INCREASED [None]
  - HYPERTENSION [None]
